FAERS Safety Report 16107990 (Version 1)
Quarter: 2019Q1

REPORT INFORMATION
  Report Type: Spontaneous
  Country: DE (occurrence: DE)
  Receive Date: 20190322
  Receipt Date: 20190322
  Transmission Date: 20190418
  Serious: Yes (Other)
  Sender: FDA-Public Use
  Company Number: PHHY2019DE061916

PATIENT
  Sex: Female

DRUGS (1)
  1. LOSARTAN - 1 A PHARMA [Suspect]
     Active Substance: LOSARTAN
     Indication: HYPERTENSION
     Dosage: UNK
     Route: 065

REACTIONS (6)
  - Atrial fibrillation [Unknown]
  - Chills [Unknown]
  - Heart rate increased [Unknown]
  - Bradycardia [Unknown]
  - Nausea [Unknown]
  - Fall [Unknown]
